FAERS Safety Report 9032758 (Version 1)
Quarter: 2013Q1

REPORT INFORMATION
  Report Type: Spontaneous
  Country: US (occurrence: None)
  Receive Date: 20130110
  Receipt Date: 20130110
  Transmission Date: 20140127
  Serious: Yes (Hospitalization, Other)
  Sender: FDA-Public Use
  Company Number: DAV-AE-MTX-13-02

PATIENT
  Age: 15 Year
  Sex: Male

DRUGS (6)
  1. METHOTREXATE [Suspect]
     Indication: ACUTE LYMPHOCYTIC LEUKAEMIA
     Route: 037
  2. CYCLOPHOSPHAMIDE [Concomitant]
  3. CYTARABINE [Concomitant]
  4. MERCAPTOPURINE [Concomitant]
  5. PEGASPARGASE [Concomitant]
  6. VINCRISTINE [Concomitant]

REACTIONS (15)
  - Neurotoxicity [None]
  - Headache [None]
  - Paraesthesia [None]
  - Dysphagia [None]
  - Dysarthria [None]
  - Paraesthesia [None]
  - Blood pressure decreased [None]
  - Heart rate increased [None]
  - VIIth nerve paralysis [None]
  - Gait disturbance [None]
  - Nuclear magnetic resonance imaging brain abnormal [None]
  - White blood cell count decreased [None]
  - Platelet count decreased [None]
  - Haemoglobin decreased [None]
  - Blood creatinine decreased [None]
